FAERS Safety Report 5563858-9 (Version None)
Quarter: 2007Q4

REPORT INFORMATION
  Report Type: 
  Country: None (occurrence: None)
  Receive Date: 20071217
  Receipt Date: 20071023
  Transmission Date: 20080405
  Serious: No
  Sender: FDA-Public Use
  Company Number: US-ASTRAZENECA-2007UW24584

PATIENT
  Age: 64 Year
  Sex: Female

DRUGS (6)
  1. CRESTOR [Suspect]
     Route: 048
  2. GABAPENTIN [Concomitant]
  3. LORAZEPAM [Concomitant]
  4. FIORICET [Concomitant]
  5. ZOLPIDEM TARTRATE [Concomitant]
  6. WELLBUTRIN [Concomitant]

REACTIONS (3)
  - DIARRHOEA [None]
  - HEADACHE [None]
  - MEDICATION RESIDUE [None]
